FAERS Safety Report 14246736 (Version 4)
Quarter: 2018Q1

REPORT INFORMATION
  Report Type: Spontaneous
  Country: US (occurrence: US)
  Receive Date: 20171204
  Receipt Date: 20180205
  Transmission Date: 20180508
  Serious: Yes (Other)
  Sender: FDA-Public Use
  Company Number: US-PFIZER INC-2017515048

PATIENT
  Age: 64 Year
  Sex: Female
  Weight: 44.9 kg

DRUGS (3)
  1. GABAPENTIN. [Suspect]
     Active Substance: GABAPENTIN
     Indication: POST HERPETIC NEURALGIA
  2. GABAPENTIN. [Suspect]
     Active Substance: GABAPENTIN
     Indication: NEUROPATHY PERIPHERAL
     Dosage: 3000 MG, 1X/DAY (10 PER DAY/ALL AT NIGHT)
     Route: 048
     Dates: start: 201801
  3. GABAPENTIN. [Suspect]
     Active Substance: GABAPENTIN
     Indication: COMPLEX REGIONAL PAIN SYNDROME

REACTIONS (10)
  - Sleep disorder [Recovered/Resolved]
  - Nerve injury [Unknown]
  - Drug ineffective [Recovered/Resolved]
  - Condition aggravated [Unknown]
  - Suicidal ideation [Recovered/Resolved]
  - Dizziness [Recovered/Resolved]
  - Sympathetic posterior cervical syndrome [Recovered/Resolved]
  - Pain [Recovered/Resolved]
  - Feeling abnormal [Recovered/Resolved]
  - Blood pressure increased [Recovered/Resolved]
